FAERS Safety Report 22131835 (Version 2)
Quarter: 2023Q2

REPORT INFORMATION
  Report Type: Spontaneous
  Country: US (occurrence: US)
  Receive Date: 20230323
  Receipt Date: 20230522
  Transmission Date: 20230721
  Serious: No
  Sender: FDA-Public Use
  Company Number: US-ABBVIE-4700768

PATIENT
  Sex: Female
  Weight: 72.574 kg

DRUGS (4)
  1. IMBRUVICA [Suspect]
     Active Substance: IBRUTINIB
     Indication: Chronic lymphocytic leukaemia
     Dosage: TIME INTERVAL: 0.33333333 DAYS
     Route: 048
     Dates: start: 201903
  2. IMBRUVICA [Suspect]
     Active Substance: IBRUTINIB
     Indication: Chronic lymphocytic leukaemia
     Dosage: TIME INTERVAL: 0.33333333 DAYS
     Route: 048
     Dates: start: 20180908
  3. HYDROCHLOROTHIAZIDE\TRIAMTERENE [Concomitant]
     Active Substance: HYDROCHLOROTHIAZIDE\TRIAMTERENE
     Indication: Hypertension
  4. ATORVASTATIN [Concomitant]
     Active Substance: ATORVASTATIN
     Indication: Blood cholesterol increased

REACTIONS (15)
  - Dyspepsia [Recovered/Resolved]
  - Muscle spasms [Recovering/Resolving]
  - Ear pain [Recovered/Resolved]
  - Neuropathy peripheral [Recovering/Resolving]
  - Nail growth abnormal [Recovering/Resolving]
  - Back pain [Recovered/Resolved]
  - Neuropathy peripheral [Recovered/Resolved]
  - Diarrhoea [Recovered/Resolved]
  - Diarrhoea [Recovering/Resolving]
  - Weight decreased [Recovering/Resolving]
  - Abdominal pain upper [Recovered/Resolved]
  - Chest pain [Recovered/Resolved]
  - Dyspepsia [Recovered/Resolved]
  - Decreased appetite [Recovering/Resolving]
  - Neck pain [Recovered/Resolved]

NARRATIVE: CASE EVENT DATE: 20190101
